FAERS Safety Report 4309104-5 (Version None)
Quarter: 2004Q1

REPORT INFORMATION
  Report Type: 
  Country: None (occurrence: None)
  Receive Date: 20040227
  Receipt Date: 20040212
  Transmission Date: 20041129
  Serious: Yes (Hospitalization)
  Sender: FDA-Public Use
  Company Number: DSA_22453_2003

PATIENT
  Age: 67 Year
  Sex: Male

DRUGS (3)
  1. ENALAPRIL MALEATE AND HYDROCHLOROTHIAZIDE [Suspect]
     Indication: HYPERTENSION
     Dosage: 1 TAB QD PO
     Route: 048
     Dates: start: 20010101, end: 20030301
  2. ENALAPRIL MALEATE AND HYDROCHLOROTHIAZIDE [Suspect]
     Indication: HYPERTENSION
     Dosage: 1 TAB QD PO
     Route: 048
     Dates: start: 20030401
  3. MEPROBAMATE [Concomitant]

REACTIONS (8)
  - ANAEMIA [None]
  - BLOOD IRON DECREASED [None]
  - C-REACTIVE PROTEIN INCREASED [None]
  - DIVERTICULUM INTESTINAL HAEMORRHAGIC [None]
  - DYSPNOEA [None]
  - HYPOXIA [None]
  - PAIN IN EXTREMITY [None]
  - RED BLOOD CELL SEDIMENTATION RATE INCREASED [None]
